FAERS Safety Report 16098863 (Version 1)
Quarter: 2019Q1

REPORT INFORMATION
  Report Type: Spontaneous
  Country: US (occurrence: US)
  Receive Date: 20190321
  Receipt Date: 20190321
  Transmission Date: 20190418
  Serious: No
  Sender: FDA-Public Use
  Company Number: US-JNJFOC-20190311181

PATIENT
  Age: 37 Year
  Sex: Female

DRUGS (3)
  1. NIZORAL A-D [Suspect]
     Active Substance: KETOCONAZOLE
     Indication: DANDRUFF
     Route: 061
  2. NIZORAL A-D [Suspect]
     Active Substance: KETOCONAZOLE
     Indication: PRURITUS
     Route: 061
  3. NIZORAL A-D [Suspect]
     Active Substance: KETOCONAZOLE
     Indication: SKIN ULCER
     Route: 061

REACTIONS (1)
  - Intentional product misuse [Unknown]
